FAERS Safety Report 10478248 (Version 3)
Quarter: 2014Q4

REPORT INFORMATION
  Report Type: Spontaneous
  Country: BR (occurrence: BR)
  Receive Date: 20140926
  Receipt Date: 20141028
  Transmission Date: 20150528
  Serious: Yes (Other)
  Sender: FDA-Public Use
  Company Number: BR-ALLERGAN-1420297US

PATIENT
  Age: 62 Year
  Sex: Male

DRUGS (8)
  1. FENILEFRINA 10% SOLUTION [Suspect]
     Active Substance: PHENYLEPHRINE HYDROCHLORIDE
     Indication: CATARACT OPERATION
  2. LACTATED RINGERS [Concomitant]
     Active Substance: CALCIUM CHLORIDE\POTASSIUM CHLORIDE\SODIUM CHLORIDE\SODIUM LACTATE
  3. FENILEFRINA 10% SOLUTION [Suspect]
     Active Substance: PHENYLEPHRINE HYDROCHLORIDE
     Indication: MYDRIASIS
     Dosage: 2 GTT, SINGLE
     Route: 047
     Dates: start: 20140806, end: 20140806
  4. TROPICAMIDE. [Concomitant]
     Active Substance: TROPICAMIDE
     Dosage: 2 GTT, UNKNOWN
     Route: 047
  5. PROXYMETACAINE [Concomitant]
     Dosage: 2 GTT, UNKNOWN
     Route: 047
  6. TRYPAN BLUE [Concomitant]
     Active Substance: TRYPAN BLUE
  7. LIDOCAINE. [Concomitant]
     Active Substance: LIDOCAINE
     Dosage: 0.5 G, UNKNOWN
     Route: 065
  8. LIDOCAINE. [Concomitant]
     Active Substance: LIDOCAINE
     Dosage: 2 ML, UNKNOWN
     Route: 065

REACTIONS (2)
  - Blindness [Unknown]
  - Toxic anterior segment syndrome [Unknown]

NARRATIVE: CASE EVENT DATE: 20140806
